FAERS Safety Report 8398340 (Version 4)
Quarter: 2013Q4

REPORT INFORMATION
  Report Type: Spontaneous
  Country: US (occurrence: US)
  Receive Date: 20120209
  Receipt Date: 20131210
  Transmission Date: 20140711
  Serious: Yes (Other)
  Sender: FDA-Public Use
  Company Number: US-PFIZER INC-2012032357

PATIENT
  Age: 84 Year
  Sex: Female
  Weight: 63.04 kg

DRUGS (16)
  1. LIPITOR [Suspect]
     Indication: BLOOD CHOLESTEROL INCREASED
     Dosage: 10 MG, 1X/DAY
     Route: 048
     Dates: start: 1997, end: 201201
  2. LIPITOR [Suspect]
     Indication: CARDIAC FAILURE CONGESTIVE
     Dosage: UNK
     Dates: start: 2012
  3. LIPITOR [Suspect]
     Indication: ATRIOVENTRICULAR BLOCK
  4. LIPITOR [Suspect]
     Indication: CEREBROVASCULAR ACCIDENT PROPHYLAXIS
  5. LIPITOR [Suspect]
     Indication: ISCHAEMIC HEART DISEASE PROPHYLAXIS
  6. ATORVASTATIN CALCIUM [Suspect]
     Indication: CARDIAC FAILURE CONGESTIVE
     Dosage: 10 MG, DAILY
     Dates: end: 20120427
  7. ATORVASTATIN CALCIUM [Suspect]
     Indication: ATRIOVENTRICULAR BLOCK
  8. ATORVASTATIN CALCIUM [Suspect]
     Indication: ISCHAEMIC HEART DISEASE PROPHYLAXIS
  9. ATORVASTATIN CALCIUM [Suspect]
     Indication: CEREBROVASCULAR ACCIDENT PROPHYLAXIS
  10. ATORVASTATIN CALCIUM [Suspect]
     Indication: BLOOD CHOLESTEROL INCREASED
  11. ATORVASTATIN CALCIUM [Suspect]
     Indication: CEREBROVASCULAR ACCIDENT PROPHYLAXIS
  12. ATORVASTATIN CALCIUM [Suspect]
     Indication: CARDIOVASCULAR EVENT PROPHYLAXIS
  13. FUROSEMIDE [Suspect]
     Indication: CARDIAC DISORDER
     Dosage: 20 MG PILLS, 3X/WEEK
  14. WARFARIN [Concomitant]
     Indication: BLOOD DISORDER
     Dosage: UNK
  15. METOPROLOL [Concomitant]
     Indication: CARDIAC DISORDER
     Dosage: UNK
  16. ENALAPRIL [Concomitant]
     Indication: HYPERTENSION
     Dosage: 5 MG, AS NEEDED

REACTIONS (20)
  - Cardiac disorder [Not Recovered/Not Resolved]
  - Eyelid disorder [Not Recovered/Not Resolved]
  - Dizziness [Recovering/Resolving]
  - Feeling abnormal [Not Recovered/Not Resolved]
  - Renal disorder [Unknown]
  - Liver disorder [Unknown]
  - Neck pain [Recovering/Resolving]
  - Headache [Recovering/Resolving]
  - Dysstasia [Recovering/Resolving]
  - Blood glucose decreased [Unknown]
  - Blood triglycerides increased [Not Recovered/Not Resolved]
  - Head discomfort [Not Recovered/Not Resolved]
  - Swelling [Not Recovered/Not Resolved]
  - Local swelling [Not Recovered/Not Resolved]
  - Malaise [Not Recovered/Not Resolved]
  - Alopecia [Not Recovered/Not Resolved]
  - Weight increased [Unknown]
  - Asthenia [Unknown]
  - Hepatic steatosis [Recovered/Resolved]
  - Drug ineffective [Unknown]
